FAERS Safety Report 17418484 (Version 3)
Quarter: 2021Q4

REPORT INFORMATION
  Report Type: Spontaneous
  Country: PT (occurrence: PT)
  Receive Date: 20200214
  Receipt Date: 20211214
  Transmission Date: 20220303
  Serious: Yes (Other)
  Sender: FDA-Public Use
  Company Number: PT-AUROBINDO-AUR-APL-2019-104664

PATIENT
  Age: 64 Year
  Sex: Female

DRUGS (3)
  1. PIPERACILLIN SODIUM\TAZOBACTAM SODIUM [Suspect]
     Active Substance: PIPERACILLIN SODIUM\TAZOBACTAM SODIUM
     Indication: Sepsis
     Dosage: UNK
     Route: 065
  2. PIPERACILLIN [Suspect]
     Active Substance: PIPERACILLIN
     Indication: Pneumonia
     Dosage: UNK
  3. MEROPENEM [Suspect]
     Active Substance: MEROPENEM
     Indication: Sepsis
     Dosage: UNK
     Route: 065

REACTIONS (5)
  - Off label use [Unknown]
  - Acute kidney injury [Unknown]
  - Renal impairment [Unknown]
  - Blood creatinine increased [Recovering/Resolving]
  - Diarrhoea [Unknown]
